FAERS Safety Report 8026494-0 (Version None)
Quarter: 2012Q1

REPORT INFORMATION
  Report Type: 
  Country: None (occurrence: None)
  Receive Date: 20120105
  Receipt Date: 20111226
  Transmission Date: 20120608
  Serious: Yes (Other)
  Sender: FDA-Public Use
  Company Number: FR-MYLANLABS-2011S1026334

PATIENT
  Age: 2 Year
  Sex: Male

DRUGS (2)
  1. ALBUTEROL SULFATE AUTOHALER [Suspect]
     Indication: PRODUCT USED FOR UNKNOWN INDICATION
     Route: 042
     Dates: start: 20111012, end: 20111012
  2. NEBCIN [Suspect]
     Indication: PRODUCT USED FOR UNKNOWN INDICATION
     Route: 042
     Dates: start: 20111012, end: 20111012

REACTIONS (4)
  - DRUG LEVEL INCREASED [None]
  - TACHYCARDIA [None]
  - OVERDOSE [None]
  - DRUG ADMINISTRATION ERROR [None]
